FAERS Safety Report 12834445 (Version 2)
Quarter: 2016Q4

REPORT INFORMATION
  Report Type: Report from Study
  Country: ES (occurrence: ES)
  Receive Date: 20161010
  Receipt Date: 20161017
  Transmission Date: 20170207
  Serious: Yes (Hospitalization, Other)
  Sender: FDA-Public Use
  Company Number: ES-VIIV HEALTHCARE LIMITED-ES2016GSK146304

PATIENT
  Age: 45 Year
  Sex: Male
  Weight: 78 kg

DRUGS (6)
  1. MYAMBUTOL [Concomitant]
     Active Substance: ETHAMBUTOL HYDROCHLORIDE
     Indication: ATYPICAL MYCOBACTERIAL LYMPHADENITIS
     Dosage: 400 MG, TID
     Route: 048
     Dates: start: 20150707
  2. RALTEGRAVIR. [Suspect]
     Active Substance: RALTEGRAVIR
     Indication: HIV INFECTION
     Route: 048
  3. SEPTRIN F [Concomitant]
     Indication: PROPHYLAXIS
     Dosage: UNK
     Route: 048
     Dates: start: 20150806
  4. VALTREX [Concomitant]
     Active Substance: VALACYCLOVIR HYDROCHLORIDE
     Indication: HERPES VIRUS INFECTION
     Dosage: 1000 MG, BID
     Route: 048
     Dates: start: 20160302, end: 20160314
  5. LEVOFLOXACIN. [Concomitant]
     Active Substance: LEVOFLOXACIN
     Indication: ATYPICAL MYCOBACTERIAL LYMPHADENITIS
     Dosage: 500 MG, QID
     Route: 048
     Dates: start: 20160202, end: 20160330
  6. DACORTIN [Concomitant]
     Active Substance: PREDNISONE
     Indication: ATYPICAL MYCOBACTERIAL LYMPHADENITIS
     Dosage: 30 MG, QID
     Route: 048
     Dates: start: 20150806

REACTIONS (1)
  - Erythema multiforme [Recovered/Resolved]

NARRATIVE: CASE EVENT DATE: 20160309
